FAERS Safety Report 14329918 (Version 4)
Quarter: 2018Q1

REPORT INFORMATION
  Report Type: Report from Study
  Country: US (occurrence: US)
  Receive Date: 20171227
  Receipt Date: 20180212
  Transmission Date: 20180509
  Serious: Yes (Hospitalization, Disabling, Other)
  Sender: FDA-Public Use
  Company Number: US-009507513-1711USA003791

PATIENT
  Age: 52 Year
  Sex: Male

DRUGS (12)
  1. PEMBROLIZUMAB. [Suspect]
     Active Substance: PEMBROLIZUMAB
     Indication: METASTASES TO LIVER
     Dosage: UNK, EVERY 3 WEEKS (STRENGHT: 100 MG)
     Route: 042
     Dates: start: 2017, end: 2017
  2. ANTINEOPLASTIC (UNSPECIFIED) [Concomitant]
     Active Substance: UNSPECIFIED INGREDIENT
     Dosage: UNK
     Dates: start: 20171013
  3. MIRALAX [Concomitant]
     Active Substance: POLYETHYLENE GLYCOL 3350
     Dosage: UNK
  4. PEMBROLIZUMAB. [Suspect]
     Active Substance: PEMBROLIZUMAB
     Indication: METASTASES TO BONE
     Dosage: UNK, EVERY 3 WEEKS (STRENGHT: 100 MG)
     Route: 042
     Dates: start: 20171127, end: 20171127
  5. LOVENOX [Concomitant]
     Active Substance: ENOXAPARIN SODIUM
     Dosage: UNK
  6. FENTANYL. [Concomitant]
     Active Substance: FENTANYL
     Indication: PAIN IN EXTREMITY
     Dosage: 75 MG, EVERY 3 DAYS
  7. FENTANYL. [Concomitant]
     Active Substance: FENTANYL
     Indication: ARTHRALGIA
  8. PEMBROLIZUMAB. [Suspect]
     Active Substance: PEMBROLIZUMAB
     Dosage: UNK, EVERY 3 WEEKS (STRENGHT: 100 MG)
     Route: 042
     Dates: start: 20171220, end: 20171220
  9. OXYCODONE [Concomitant]
     Active Substance: OXYCODONE
     Dosage: 1.5 MG, EVERY 4 HOURS
  10. PEMBROLIZUMAB. [Suspect]
     Active Substance: PEMBROLIZUMAB
     Indication: LUNG CARCINOMA CELL TYPE UNSPECIFIED STAGE IV
     Dosage: UNK, EVERY 3 WEEKS (STRENGHT: 100 MG)
     Route: 042
     Dates: start: 20171013, end: 20171013
  11. MOTRIN [Concomitant]
     Active Substance: IBUPROFEN
     Dosage: UNK
  12. FENTANYL. [Concomitant]
     Active Substance: FENTANYL
     Dosage: 50 MG, UNK

REACTIONS (19)
  - Malignant neoplasm progression [Unknown]
  - Dysstasia [Unknown]
  - Nausea [Not Recovered/Not Resolved]
  - Appetite disorder [Recovered/Resolved]
  - Feeling abnormal [Unknown]
  - Product use issue [Unknown]
  - Drug tolerance increased [Unknown]
  - Pelvic fracture [Unknown]
  - Gait inability [Unknown]
  - Heart rate increased [Unknown]
  - Full blood count decreased [Not Recovered/Not Resolved]
  - Gait disturbance [Unknown]
  - Pain [Not Recovered/Not Resolved]
  - Bone disorder [Unknown]
  - Arthralgia [Not Recovered/Not Resolved]
  - Thrombosis [Unknown]
  - Renal impairment [Unknown]
  - Dehydration [Unknown]
  - Bone pain [Unknown]

NARRATIVE: CASE EVENT DATE: 2017
